FAERS Safety Report 18622778 (Version 1)
Quarter: 2020Q4

REPORT INFORMATION
  Report Type: Spontaneous
  Country: US (occurrence: US)
  Receive Date: 20201216
  Receipt Date: 20201216
  Transmission Date: 20210114
  Serious: No
  Sender: FDA-Public Use
  Company Number: US-TARO-2020TAR01121

PATIENT

DRUGS (1)
  1. FLUOROURACIL TOPICAL SOLUTION USP 2% [Suspect]
     Active Substance: FLUOROURACIL
     Indication: PRODUCT USED FOR UNKNOWN INDICATION
     Dosage: UNK
     Route: 061
     Dates: start: 202006, end: 20200611

REACTIONS (4)
  - Tinnitus [Not Recovered/Not Resolved]
  - Stomatitis [Recovered/Resolved]
  - Ear discomfort [Not Recovered/Not Resolved]
  - Contusion [Recovered/Resolved]

NARRATIVE: CASE EVENT DATE: 202006
